FAERS Safety Report 8827642 (Version 1)
Quarter: 2012Q4

REPORT INFORMATION
  Report Type: 
  Country: CN (occurrence: CN)
  Receive Date: 20121008
  Receipt Date: 20121008
  Transmission Date: 20130627
  Serious: No
  Sender: FDA-Public Use
  Company Number: CN-JNJFOC-20120912099

PATIENT

DRUGS (2)
  1. DUROGESIC D-TRANS [Suspect]
     Indication: CANCER PAIN
     Route: 062
  2. MORPHINE [Suspect]
     Indication: CANCER PAIN
     Route: 048

REACTIONS (8)
  - Drug ineffective [Unknown]
  - Nausea [Unknown]
  - Vomiting [Unknown]
  - Constipation [Unknown]
  - Dizziness [Unknown]
  - Somnolence [Unknown]
  - Dermatitis allergic [Unknown]
  - Incorrect drug administration duration [Unknown]
